FAERS Safety Report 23875055 (Version 2)
Quarter: 2024Q2

REPORT INFORMATION
  Report Type: Spontaneous
  Country: US (occurrence: US)
  Receive Date: 20240520
  Receipt Date: 20240610
  Transmission Date: 20240716
  Serious: No
  Sender: FDA-Public Use
  Company Number: US-Calliditas-2024CAL00726

PATIENT
  Age: 55 Year
  Sex: Female
  Weight: 84.8 kg

DRUGS (1)
  1. TARPEYO [Suspect]
     Active Substance: BUDESONIDE
     Indication: IgA nephropathy
     Route: 048
     Dates: start: 20240104, end: 20240522

REACTIONS (4)
  - Weight increased [Unknown]
  - Fatigue [Unknown]
  - Prescribed underdose [Unknown]
  - Laboratory test abnormal [Unknown]
